FAERS Safety Report 18528974 (Version 16)
Quarter: 2021Q1

REPORT INFORMATION
  Report Type: Report from Study
  Country: CN (occurrence: CN)
  Receive Date: 20201120
  Receipt Date: 20210201
  Transmission Date: 20210419
  Serious: Yes (Hospitalization)
  Sender: FDA-Public Use
  Company Number: CN-EISAI MEDICAL RESEARCH-EC-2020-084064

PATIENT
  Age: 79 Year
  Sex: Male
  Weight: 75 kg

DRUGS (10)
  1. ENTECAVIR. [Concomitant]
     Active Substance: ENTECAVIR
     Dates: start: 201910
  2. PLACEBO [Suspect]
     Active Substance: UNSPECIFIED INGREDIENT
     Route: 041
     Dates: start: 20201005, end: 20201005
  3. HYDROCHLOROTHIAZIDE. [Concomitant]
     Active Substance: HYDROCHLOROTHIAZIDE
     Dates: start: 20201026
  4. PLACEBO [Suspect]
     Active Substance: UNSPECIFIED INGREDIENT
     Indication: HEPATOCELLULAR CARCINOMA
     Route: 041
     Dates: start: 20191112, end: 20200914
  5. LENVATINIB [Suspect]
     Active Substance: LENVATINIB
     Indication: HEPATOCELLULAR CARCINOMA
     Dosage: (BODY WEIGHT (BW) GREATER THAN OR EQUAL TO 60 KG)
     Route: 048
     Dates: start: 20191112, end: 20201025
  6. LEUCOGEN [Concomitant]
     Active Substance: LEUCOGEN
     Dates: start: 20200623
  7. CALCIUM DOBESILATE [Concomitant]
     Active Substance: CALCIUM DOBESILATE
     Dates: start: 20201026
  8. BAI LING JIAO NANG [Concomitant]
     Dates: start: 20201026
  9. CAPTOPRIL. [Concomitant]
     Active Substance: CAPTOPRIL
     Dates: start: 20200204
  10. XUE MEI AN JIAO NANG [Concomitant]
     Dates: start: 20200921

REACTIONS (2)
  - Chronic kidney disease [Recovered/Resolved with Sequelae]
  - Ascites [Recovered/Resolved with Sequelae]

NARRATIVE: CASE EVENT DATE: 20201104
